FAERS Safety Report 23668510 (Version 4)
Quarter: 2024Q2

REPORT INFORMATION
  Report Type: Spontaneous
  Country: JP (occurrence: JP)
  Receive Date: 20240325
  Receipt Date: 20240531
  Transmission Date: 20240716
  Serious: Yes (Other)
  Sender: FDA-Public Use
  Company Number: JP-002147023-NVSJ2024JP003329

PATIENT
  Age: 67 Year

DRUGS (4)
  1. XOLAIR [Suspect]
     Active Substance: OMALIZUMAB
     Indication: Urticaria chronic
     Dosage: RECEIVED 3 DOSES OF 300 MG
     Route: 058
     Dates: start: 20230424
  2. XOLAIR [Suspect]
     Active Substance: OMALIZUMAB
     Dosage: RECEIVED 3 DOSES OF 300 MG?SOLUTION FOR INJECTION IN PRE-FILLED SYRINGE
     Route: 058
  3. XOLAIR [Suspect]
     Active Substance: OMALIZUMAB
     Dosage: RECEIVED 3 DOSES OF 300 MG?SOLUTION FOR INJECTION IN PRE-FILLED SYRINGE
     Route: 058
     Dates: end: 20230620
  4. XOLAIR [Suspect]
     Active Substance: OMALIZUMAB
     Dosage: RECEIVED 3 DOSES OF 300 MG?SOLUTION FOR INJECTION IN PRE-FILLED SYRINGE
     Route: 058
     Dates: start: 20240115, end: 20240115

REACTIONS (2)
  - Eosinophil count increased [Recovering/Resolving]
  - Rash [Recovering/Resolving]

NARRATIVE: CASE EVENT DATE: 20240201
